FAERS Safety Report 10764861 (Version 1)
Quarter: 2015Q1

REPORT INFORMATION
  Report Type: Spontaneous
  Country: US (occurrence: None)
  Receive Date: 20150203
  Receipt Date: 20150203
  Transmission Date: 20150721
  Serious: Yes (Death)
  Sender: FDA-Public Use
  Company Number: INS201501-000031

PATIENT
  Age: 32 Year

DRUGS (4)
  1. SUBSYS [Suspect]
     Active Substance: FENTANYL
     Indication: POST LAMINECTOMY SYNDROME
     Dosage: 120 UNITS
     Dates: start: 20140428
  2. SUBSYS [Suspect]
     Active Substance: FENTANYL
     Indication: PAIN
     Dosage: 120 UNITS
     Dates: start: 20140428
  3. SUBSYS [Suspect]
     Active Substance: FENTANYL
     Indication: FIBROMYALGIA
     Dosage: 120 UNITS
     Dates: start: 20140428
  4. SUBSYS [Suspect]
     Active Substance: FENTANYL
     Indication: COCCYDYNIA
     Dosage: 120 UNITS
     Dates: start: 20140428

REACTIONS (1)
  - Off label use [None]
